FAERS Safety Report 5096749-0 (Version None)
Quarter: 2006Q3

REPORT INFORMATION
  Report Type: 
  Country: None (occurrence: None)
  Receive Date: 20060831
  Receipt Date: 20060818
  Transmission Date: 20061208
  Serious: Yes (Death, Other)
  Sender: FDA-Public Use
  Company Number: 2006US001813

PATIENT
  Age: 43 Year
  Sex: Female

DRUGS (17)
  1. AMBISOME [Suspect]
     Indication: BRONCHOPULMONARY ASPERGILLOSIS
     Dosage: 100 MG, UID/QD, IV NOS
     Route: 042
     Dates: start: 20060719, end: 20060722
  2. PIPERACILLIN [Concomitant]
  3. TAZOCIN (PIPERACILLIN SODIUM, TAZOBACTAM SODIUM) [Concomitant]
  4. TARGOCID [Concomitant]
  5. VORICONAZOLE (VORICONAZOLE) [Concomitant]
  6. SOLU-CORTEF [Concomitant]
  7. CEFTAZIDIME (CEFTAZIDIME) [Concomitant]
  8. HOKUNALIN (TULOBUTEROL HYDROCHLORIDE) [Concomitant]
  9. LASIX [Concomitant]
  10. ETOPOSIDE (ETOPOSIDE PHOSPHATE) [Concomitant]
  11. METHYLPREDNISOLONE [Concomitant]
  12. CYTARABINE [Concomitant]
  13. CISPLATIN [Concomitant]
  14. DOPAMINE HYDROCHLORIDE [Concomitant]
  15. AMIYU (NEOAMIYU) (AMINO ACIDS NOS) [Concomitant]
  16. NOVOLIN R [Concomitant]
  17. MORPHINE [Concomitant]

REACTIONS (6)
  - DIABETES MELLITUS [None]
  - HYPERBILIRUBINAEMIA [None]
  - HYPOKALAEMIA [None]
  - PAIN [None]
  - RESPIRATORY FAILURE [None]
  - SHOCK [None]
